FAERS Safety Report 14700204 (Version 1)
Quarter: 2018Q1

REPORT INFORMATION
  Report Type: Report from Study
  Country: SN (occurrence: SN)
  Receive Date: 20180330
  Receipt Date: 20180330
  Transmission Date: 20180509
  Serious: Yes (Death)
  Sender: FDA-Public Use
  Company Number: SN-MYLANLABS-2018M1019529

PATIENT
  Age: 63 Year
  Sex: Female

DRUGS (2)
  1. HYDROQUINONE. [Suspect]
     Active Substance: HYDROQUINONE
     Indication: SKIN COSMETIC PROCEDURE
     Route: 061
  2. CLOBETASOL [Suspect]
     Active Substance: CLOBETASOL
     Indication: SKIN COSMETIC PROCEDURE
     Route: 061

REACTIONS (2)
  - Squamous cell carcinoma [Fatal]
  - Shock haemorrhagic [Fatal]
